FAERS Safety Report 8501611-4 (Version None)
Quarter: 2012Q3

REPORT INFORMATION
  Report Type: 
  Country: None (occurrence: None)
  Receive Date: 20120710
  Receipt Date: 20120702
  Transmission Date: 20120928
  Serious: No
  Sender: FDA-Public Use
  Company Number: US-B.I. PHARMACEUTICALS,INC./RIDGEFIELD-2011-BP-26533BP

PATIENT
  Age: 6 Decade
  Sex: Female

DRUGS (5)
  1. GLIMEPIRIDE [Concomitant]
     Dosage: 4 MG
  2. TRADJENTA [Suspect]
     Indication: DIABETES MELLITUS
     Route: 048
  3. METFORMIN HCL [Concomitant]
  4. DIOVAN [Concomitant]
  5. HYDROCHLOROTHIAZIDE [Concomitant]

REACTIONS (1)
  - URTICARIA [None]
